FAERS Safety Report 17127672 (Version 1)
Quarter: 2019Q4

REPORT INFORMATION
  Report Type: Spontaneous
  Country: US (occurrence: US)
  Receive Date: 20191206
  Receipt Date: 20191206
  Transmission Date: 20200122
  Serious: Yes (Disabling)
  Sender: FDA-Public Use
  Company Number: None

PATIENT
  Age: 48 Year
  Sex: Male
  Weight: 81 kg

DRUGS (1)
  1. CIPROFLOXACIN. [Suspect]
     Active Substance: CIPROFLOXACIN
     Indication: PRODUCT USED FOR UNKNOWN INDICATION
     Dosage: ?          QUANTITY:20 TABLET(S);?
     Route: 048
     Dates: start: 20191029, end: 20191106

REACTIONS (9)
  - Anxiety [None]
  - Tendon pain [None]
  - Dry mouth [None]
  - Tinnitus [None]
  - Thinking abnormal [None]
  - Restlessness [None]
  - Myalgia [None]
  - Insomnia [None]
  - Flushing [None]

NARRATIVE: CASE EVENT DATE: 20191106
